FAERS Safety Report 18705396 (Version 1)
Quarter: 2021Q1

REPORT INFORMATION
  Report Type: Spontaneous
  Country: US (occurrence: US)
  Receive Date: 20210106
  Receipt Date: 20210106
  Transmission Date: 20210419
  Serious: No
  Sender: FDA-Public Use
  Company Number: US-BIOGEN-2020BI00869911

PATIENT
  Age: 53 Year
  Sex: Female

DRUGS (4)
  1. TECFIDERA [Suspect]
     Active Substance: DIMETHYL FUMARATE
     Indication: MULTIPLE SCLEROSIS
     Route: 065
     Dates: start: 20161219
  2. TECFIDERA [Suspect]
     Active Substance: DIMETHYL FUMARATE
     Route: 065
     Dates: start: 20200504
  3. TECFIDERA [Suspect]
     Active Substance: DIMETHYL FUMARATE
     Dosage: 23 DAYS AFTER 120MG?DOSE
     Route: 065
     Dates: start: 202005
  4. TECFIDERA [Suspect]
     Active Substance: DIMETHYL FUMARATE
     Route: 065
     Dates: start: 20200430, end: 20201104

REACTIONS (16)
  - Joint range of motion decreased [Unknown]
  - Epigastric discomfort [Not Recovered/Not Resolved]
  - Diarrhoea [Not Recovered/Not Resolved]
  - Arthralgia [Not Recovered/Not Resolved]
  - Taste disorder [Unknown]
  - Memory impairment [Unknown]
  - Nausea [Unknown]
  - Product dose omission in error [Recovered/Resolved]
  - Pain [Unknown]
  - Tremor [Unknown]
  - Flatulence [Unknown]
  - Abdominal discomfort [Unknown]
  - Hot flush [Unknown]
  - Flushing [Unknown]
  - Vomiting [Recovered/Resolved]
  - Multiple sclerosis relapse [Recovered/Resolved]

NARRATIVE: CASE EVENT DATE: 202005
